FAERS Safety Report 21336950 (Version 1)
Quarter: 2022Q3

REPORT INFORMATION
  Report Type: Spontaneous
  Country: US (occurrence: None)
  Receive Date: 20220914
  Receipt Date: 20220914
  Transmission Date: 20221027
  Serious: Yes (Other)
  Sender: FDA-Public Use
  Company Number: None

PATIENT
  Age: 72 Year
  Sex: Male
  Weight: 87.75 kg

DRUGS (26)
  1. MYRBETRIQ [Suspect]
     Active Substance: MIRABEGRON
     Indication: Bladder disorder
     Route: 048
     Dates: start: 20220901, end: 20220914
  2. OXCARBAZEPINE [Suspect]
     Active Substance: OXCARBAZEPINE
  3. TRULICITY [Concomitant]
     Active Substance: DULAGLUTIDE
  4. FARXIGA [Concomitant]
     Active Substance: DAPAGLIFLOZIN PROPANEDIOL
  5. TAMSULOSIN [Concomitant]
     Active Substance: TAMSULOSIN
  6. Pantoprazone [Concomitant]
  7. PILOCARPINE [Concomitant]
     Active Substance: PILOCARPINE
  8. OXCARBAZEPINE [Concomitant]
     Active Substance: OXCARBAZEPINE
  9. VASCEPA [Concomitant]
     Active Substance: ICOSAPENT ETHYL
  10. BIKTARVY [Concomitant]
     Active Substance: BICTEGRAVIR SODIUM\EMTRICITABINE\TENOFOVIR ALAFENAMIDE FUMARATE
  11. METFORMIN [Concomitant]
     Active Substance: METFORMIN HYDROCHLORIDE
  12. ROSUVASTATIN [Concomitant]
     Active Substance: ROSUVASTATIN
  13. AUSTEDO [Concomitant]
     Active Substance: DEUTETRABENAZINE
  14. MYRBETRIQ [Concomitant]
     Active Substance: MIRABEGRON
  15. BENZONATATE [Concomitant]
     Active Substance: BENZONATATE
  16. AMMONIUM LACTATE [Concomitant]
  17. Ketaconozale cream 2% [Concomitant]
  18. CLOBETASOL PROPIONATE [Concomitant]
     Active Substance: CLOBETASOL PROPIONATE
  19. Ketaconozale shampoo 2% [Concomitant]
  20. Ipratropiumn0.06 nasal spray [Concomitant]
  21. VITAMIN E [Concomitant]
     Active Substance: .ALPHA.-TOCOPHEROL
  22. VITAMIN D [Concomitant]
     Active Substance: VITAMIN D NOS
  23. ZYRTEC [Concomitant]
     Active Substance: CETIRIZINE HYDROCHLORIDE
  24. XYZAL [Concomitant]
     Active Substance: LEVOCETIRIZINE DIHYDROCHLORIDE
  25. MELATONIN [Concomitant]
     Active Substance: MELATONIN
  26. ALEVE [Concomitant]
     Active Substance: NAPROXEN SODIUM

REACTIONS (4)
  - Rash erythematous [None]
  - Rash pruritic [None]
  - Rash papular [None]
  - Hypersensitivity [None]

NARRATIVE: CASE EVENT DATE: 20220905
